FAERS Safety Report 6919884-8 (Version None)
Quarter: 2010Q3

REPORT INFORMATION
  Report Type: 
  Country: None (occurrence: None)
  Receive Date: 20100811
  Receipt Date: 20100805
  Transmission Date: 20110219
  Serious: Yes (Death)
  Sender: FDA-Public Use
  Company Number: A0874209A

PATIENT
  Age: 87 Year
  Sex: Female

DRUGS (8)
  1. VOTRIENT [Suspect]
     Indication: RENAL CANCER
     Dosage: 200MG IN THE MORNING
     Route: 048
     Dates: start: 20100523
  2. FOLIC [Concomitant]
  3. LIPITOR [Concomitant]
  4. ZETIA [Concomitant]
  5. ACETAMINOPHEN [Concomitant]
  6. VIT E [Concomitant]
  7. METOPROLOL TARTRATE [Concomitant]
  8. ANTIBIOTIC [Concomitant]

REACTIONS (2)
  - DIALYSIS [None]
  - RENAL FAILURE [None]
